FAERS Safety Report 11964612 (Version 5)
Quarter: 2020Q1

REPORT INFORMATION
  Report Type: Spontaneous
  Country: CA (occurrence: CA)
  Receive Date: 20160127
  Receipt Date: 20200108
  Transmission Date: 20200409
  Serious: Yes (Hospitalization)
  Sender: FDA-Public Use
  Company Number: CA-ROCHE-1700523

PATIENT
  Age: 53 Year
  Sex: Female

DRUGS (14)
  1. METHOTREXATE. [Concomitant]
     Active Substance: METHOTREXATE
  2. ARAVA [Suspect]
     Active Substance: LEFLUNOMIDE
     Route: 065
     Dates: start: 201209, end: 201305
  3. PLAQUENIL [Suspect]
     Active Substance: HYDROXYCHLOROQUINE SULFATE
     Indication: RHEUMATOID ARTHRITIS
     Dosage: THERAPY DURATION: 3 MONTHS
     Route: 065
     Dates: start: 201205, end: 201207
  4. PREDNISONE. [Suspect]
     Active Substance: PREDNISONE
     Indication: RHEUMATOID ARTHRITIS
     Route: 048
  5. RITUXAN [Suspect]
     Active Substance: RITUXIMAB
     Indication: RHEUMATOID ARTHRITIS
     Dosage: DOSE: SINGLE
     Route: 042
     Dates: end: 201407
  6. ARAVA [Suspect]
     Active Substance: LEFLUNOMIDE
     Indication: RHEUMATOID ARTHRITIS
     Route: 065
     Dates: start: 2010
  7. CIMZIA [Suspect]
     Active Substance: CERTOLIZUMAB PEGOL
     Indication: RHEUMATOID ARTHRITIS
     Dosage: DOSE: SINGLE
     Route: 058
     Dates: end: 201309
  8. PREDNISONE. [Suspect]
     Active Substance: PREDNISONE
     Route: 048
  9. SIMPONI [Concomitant]
     Active Substance: GOLIMUMAB
  10. ENBREL [Concomitant]
     Active Substance: ETANERCEPT
  11. METHOTREXATE SODIUM. [Suspect]
     Active Substance: METHOTREXATE SODIUM
     Indication: RHEUMATOID ARTHRITIS
     Route: 065
     Dates: start: 2010
  12. METHOTREXATE SODIUM. [Suspect]
     Active Substance: METHOTREXATE SODIUM
     Route: 065
     Dates: start: 201201, end: 201307
  13. XELJANZ [Concomitant]
     Active Substance: TOFACITINIB CITRATE
     Route: 065
     Dates: start: 20140930
  14. SULFASALAZINE. [Suspect]
     Active Substance: SULFASALAZINE
     Indication: RHEUMATOID ARTHRITIS
     Dosage: THERAPY DURATION: 2 MONTHS
     Route: 065
     Dates: start: 201205, end: 201206

REACTIONS (13)
  - Liver function test abnormal [Recovered/Resolved]
  - Dyspnoea [Recovered/Resolved]
  - Wheezing [Recovered/Resolved]
  - Liver function test increased [Recovered/Resolved]
  - Drug ineffective [Unknown]
  - Headache [Unknown]
  - Rash [Unknown]
  - Pharyngeal oedema [Recovered/Resolved]
  - Diabetes mellitus [Recovered/Resolved]
  - Condition aggravated [Unknown]
  - Anaphylactic reaction [Recovered/Resolved]
  - Swelling [Recovered/Resolved]
  - Rheumatoid arthritis [Unknown]

NARRATIVE: CASE EVENT DATE: 2012
